FAERS Safety Report 7233435-2 (Version None)
Quarter: 2011Q1

REPORT INFORMATION
  Report Type: 
  Country: None (occurrence: None)
  Receive Date: 20110119
  Receipt Date: 20110106
  Transmission Date: 20110831
  Serious: Yes (Other)
  Sender: FDA-Public Use
  Company Number: AU-ELI_LILLY_AND_COMPANY-AU201101001186

PATIENT
  Age: 33 Year
  Sex: Female

DRUGS (3)
  1. EFFEXOR [Concomitant]
     Indication: DEPRESSION
     Dosage: 75 MG, 2/D
  2. DIAZEPAM [Concomitant]
     Indication: DEPRESSION
     Dosage: 2 MG, 2/D
  3. ZYPREXA [Suspect]
     Indication: SCHIZOPHRENIA
     Dosage: UNK, 2/D

REACTIONS (9)
  - HEPATITIS C [None]
  - APATHY [None]
  - PARANOIA [None]
  - FEAR [None]
  - FLAT AFFECT [None]
  - ACTIVITIES OF DAILY LIVING IMPAIRED [None]
  - DRUG INEFFECTIVE [None]
  - HYPERSOMNIA [None]
  - FEELING ABNORMAL [None]
